FAERS Safety Report 10006203 (Version 2)
Quarter: 2015Q1

REPORT INFORMATION
  Report Type: Report from Study
  Country: US (occurrence: US)
  Receive Date: 20140313
  Receipt Date: 20150331
  Transmission Date: 20150720
  Serious: Yes (Other)
  Sender: FDA-Public Use
  Company Number: US-ASTELLAS-2014US002488

PATIENT
  Age: 85 Year
  Sex: Male

DRUGS (3)
  1. ASPIRIN. [Concomitant]
     Active Substance: ASPIRIN
     Indication: PRODUCT USED FOR UNKNOWN INDICATION
     Dosage: UNK  (4 IN 1 WK)
     Route: 048
  2. ERLOTINIB [Suspect]
     Active Substance: ERLOTINIB
     Indication: LUNG NEOPLASM MALIGNANT
     Dosage: 150 MG, 3 DAYS ON AND 1 DAY OFF
     Route: 048
  3. ERLOTINIB [Suspect]
     Active Substance: ERLOTINIB
     Indication: LUNG NEOPLASM MALIGNANT

REACTIONS (10)
  - Hearing impaired [Unknown]
  - Epistaxis [Unknown]
  - Hypertension [Unknown]
  - Computerised tomogram abnormal [Unknown]
  - Inappropriate schedule of drug administration [Unknown]
  - Rash [Unknown]
  - Hip fracture [Unknown]
  - Haemorrhagic diathesis [Unknown]
  - Rash [Unknown]
  - Dry skin [Not Recovered/Not Resolved]

NARRATIVE: CASE EVENT DATE: 2013
